FAERS Safety Report 17291605 (Version 1)
Quarter: 2020Q1

REPORT INFORMATION
  Report Type: Spontaneous
  Country: US (occurrence: US)
  Receive Date: 20200121
  Receipt Date: 20200121
  Transmission Date: 20200409
  Serious: Yes (Other)
  Sender: FDA-Public Use
  Company Number: US-BAYER-2020-002710

PATIENT
  Age: 70 Year
  Sex: Female

DRUGS (1)
  1. MIRENA [Suspect]
     Active Substance: LEVONORGESTREL
     Indication: POLYP
     Dosage: 20 MCG/24HR, CONT
     Route: 015
     Dates: start: 201912

REACTIONS (6)
  - Contraindicated device used [None]
  - Off label use [None]
  - Vaginal haemorrhage [None]
  - Medical device monitoring error [None]
  - Post procedural haemorrhage [Recovered/Resolved]
  - Product use in unapproved indication [None]

NARRATIVE: CASE EVENT DATE: 201912
